FAERS Safety Report 16907316 (Version 1)
Quarter: 2019Q4

REPORT INFORMATION
  Report Type: Spontaneous
  Country: US (occurrence: US)
  Receive Date: 20191011
  Receipt Date: 20191011
  Transmission Date: 20200122
  Serious: No
  Sender: FDA-Public Use
  Company Number: US-SUNOVION-2019SUN004150

PATIENT
  Age: 56 Year
  Sex: Female

DRUGS (1)
  1. LONHALA MAGNAIR [Suspect]
     Active Substance: GLYCOPYRROLATE
     Dosage: 25 MCG/ML, BID (INHALE 1 ML (1 VILE) TWICE A DAY
     Route: 055

REACTIONS (2)
  - Choking sensation [Unknown]
  - Cough [Unknown]
